FAERS Safety Report 5354740-0 (Version None)
Quarter: 2007Q2

REPORT INFORMATION
  Report Type: 
  Country: None (occurrence: None)
  Receive Date: 20070612
  Receipt Date: 20070531
  Transmission Date: 20071010
  Serious: Yes (Other)
  Sender: FDA-Public Use
  Company Number: US-PFIZER INC-2006133894

PATIENT
  Sex: Male

DRUGS (2)
  1. CELEBREX [Suspect]
     Indication: ARTHRITIS
     Route: 048
     Dates: start: 20030101, end: 20031201
  2. VIOXX [Suspect]
     Route: 048
     Dates: start: 20030101, end: 20031201

REACTIONS (1)
  - CARDIOVASCULAR DISORDER [None]
